FAERS Safety Report 9995626 (Version 1)
Quarter: 2014Q1

REPORT INFORMATION
  Report Type: Spontaneous
  Country: FR (occurrence: FR)
  Receive Date: 20140311
  Receipt Date: 20140311
  Transmission Date: 20141002
  Serious: Yes (Hospitalization)
  Sender: FDA-Public Use
  Company Number: FR-SA-2014SA026581

PATIENT
  Age: 84 Year
  Sex: Male

DRUGS (6)
  1. PLAVIX [Suspect]
     Indication: PRODUCT USED FOR UNKNOWN INDICATION
     Route: 048
     Dates: start: 2009
  2. KARDEGIC [Suspect]
     Indication: PRODUCT USED FOR UNKNOWN INDICATION
     Dosage: DOSE INCREASED TO 160 MG
     Route: 048
     Dates: start: 2009, end: 20140217
  3. TRIATEC [Concomitant]
  4. TAHOR [Concomitant]
  5. IMOVANE [Concomitant]
  6. SECTRAL [Concomitant]

REACTIONS (4)
  - Transient ischaemic attack [Recovering/Resolving]
  - Dysarthria [Recovered/Resolved]
  - Motor dysfunction [Recovered/Resolved]
  - Aphasia [Recovered/Resolved]
